FAERS Safety Report 9456028 (Version 1)
Quarter: 2013Q3

REPORT INFORMATION
  Report Type: Spontaneous
  Country: DE (occurrence: DE)
  Receive Date: 20130813
  Receipt Date: 20130813
  Transmission Date: 20140515
  Serious: Yes (Other)
  Sender: FDA-Public Use
  Company Number: GXKR2013DE002684

PATIENT
  Sex: 0

DRUGS (4)
  1. LORATADIN [Suspect]
     Indication: URTICARIA
     Dosage: 10 MG, QD (GESTATIONAL WEEK 6-15)
     Route: 048
  2. TELFAST [Concomitant]
     Indication: URTICARIA
     Dosage: 168 MG, QD
     Route: 048
  3. FOLSAEURE [Concomitant]
     Indication: PROPHYLAXIS OF NEURAL TUBE DEFECT
     Dosage: 400 UG, QD
     Route: 048
  4. ALLERGOSPASMIN [Concomitant]
     Indication: ASTHMA
     Route: 055

REACTIONS (1)
  - Abortion spontaneous [Recovered/Resolved]
